FAERS Safety Report 9281828 (Version 4)
Quarter: 2013Q3

REPORT INFORMATION
  Report Type: Spontaneous
  Country: IL (occurrence: IL)
  Receive Date: 20130510
  Receipt Date: 20130701
  Transmission Date: 20140515
  Serious: Yes (Hospitalization)
  Sender: FDA-Public Use
  Company Number: IL-ROCHE-1221986

PATIENT
  Age: 83 Year
  Sex: Male

DRUGS (3)
  1. ERIVEDGE [Suspect]
     Indication: BASAL CELL CARCINOMA
     Route: 065
  2. ERIVEDGE [Suspect]
     Dosage: REINTRODUCED
     Route: 065
  3. CRESTOR [Concomitant]

REACTIONS (4)
  - Myocardial infarction [Recovered/Resolved]
  - Chest pain [Unknown]
  - Catheterisation cardiac [Unknown]
  - Asthenia [Unknown]
